FAERS Safety Report 25671268 (Version 1)
Quarter: 2025Q3

REPORT INFORMATION
  Report Type: Spontaneous
  Country: US (occurrence: US)
  Receive Date: 20250812
  Receipt Date: 20250812
  Transmission Date: 20251020
  Serious: No
  Sender: DR REDDYS
  Company Number: US-DRL-USA-USA/2025/07/010298

PATIENT
  Age: 88 Year
  Sex: Female
  Weight: 54.43 kg

DRUGS (1)
  1. FLUOROURACIL [Suspect]
     Active Substance: FLUOROURACIL
     Indication: Lip disorder
     Dosage: EXPIRATION DATE 07-2029 OR 02-2029 (SHE COULD NOT SEE IT PROPERLY)??START  DATE: 22-JUN-2025 OR 23-J
     Route: 065
     Dates: end: 20250703

REACTIONS (1)
  - Product residue present [Not Recovered/Not Resolved]
